FAERS Safety Report 23646577 (Version 2)
Quarter: 2025Q1

REPORT INFORMATION
  Report Type: Spontaneous
  Country: PT (occurrence: PT)
  Receive Date: 20240319
  Receipt Date: 20250312
  Transmission Date: 20250408
  Serious: Yes (Other)
  Sender: AUROBINDO
  Company Number: PT-SANDOZ-SDZ2024PT021388

PATIENT
  Age: 42 Year
  Sex: Male

DRUGS (6)
  1. FLUDARABINE [Suspect]
     Active Substance: FLUDARABINE PHOSPHATE
     Indication: Philadelphia positive chronic myeloid leukaemia
     Route: 065
  2. IMATINIB [Suspect]
     Active Substance: IMATINIB
     Indication: Philadelphia positive chronic myeloid leukaemia
     Route: 065
  3. CYTARABINE [Suspect]
     Active Substance: CYTARABINE
     Indication: Philadelphia positive chronic myeloid leukaemia
     Route: 065
  4. DASATINIB [Suspect]
     Active Substance: DASATINIB
     Indication: Philadelphia positive chronic myeloid leukaemia
     Route: 065
  5. GRANULOCYTE COLONY-STIMULATING FACTOR NOS [Suspect]
     Active Substance: GRANULOCYTE COLONY-STIMULATING FACTOR NOS
     Indication: Philadelphia positive chronic myeloid leukaemia
     Route: 065
  6. IDARUBICIN [Suspect]
     Active Substance: IDARUBICIN
     Indication: Philadelphia positive chronic myeloid leukaemia
     Route: 065

REACTIONS (5)
  - Acute respiratory distress syndrome [Recovered/Resolved]
  - Bone marrow failure [Recovered/Resolved]
  - Immune reconstitution inflammatory syndrome [Recovered/Resolved]
  - Congenital aplasia [Unknown]
  - Respiratory failure [Unknown]
